FAERS Safety Report 9622455 (Version 2)
Quarter: 2013Q4

REPORT INFORMATION
  Report Type: Spontaneous
  Country: US (occurrence: US)
  Receive Date: 20131015
  Receipt Date: 20131015
  Transmission Date: 20140711
  Serious: No
  Sender: FDA-Public Use
  Company Number: US-PURDUE-USA-2012-0086534

PATIENT
  Age: 44 Year
  Sex: Female
  Weight: 77.1 kg

DRUGS (8)
  1. BUTRANS [Suspect]
     Indication: PAIN
     Dosage: 20 MCG/HR, UNK
     Route: 062
     Dates: start: 20120420, end: 20120427
  2. BUTRANS [Suspect]
     Dosage: 10 MCG/HR, UNK
     Route: 062
     Dates: start: 20120208
  3. EVOXAC [Concomitant]
     Indication: DRY MOUTH
     Dosage: 30 UNK, TID PRN
     Dates: start: 20120208
  4. SEROQUEL XR [Concomitant]
     Indication: DEPRESSION
     Dosage: 150 UNK, UNK
     Dates: start: 20120111
  5. BACLOFEN [Concomitant]
     Indication: MUSCLE SPASMS
     Dosage: UNK
     Dates: start: 20120411
  6. NORTRIPTYLINE [Concomitant]
     Indication: DEPRESSION
     Dosage: 75 UNK, HS
  7. NORTRIPTYLINE [Concomitant]
     Indication: PAIN
  8. GABAPENTIN [Suspect]
     Indication: RESTLESS LEGS SYNDROME
     Dosage: 60 UNK, TID

REACTIONS (6)
  - Bone pain [Recovered/Resolved]
  - Paraesthesia [Recovered/Resolved]
  - Constipation [Recovered/Resolved]
  - Oedema peripheral [Recovered/Resolved]
  - Rash [Unknown]
  - Application site reaction [Unknown]
